FAERS Safety Report 8608936 (Version 3)
Quarter: 2013Q1

REPORT INFORMATION
  Report Type: Spontaneous
  Country: US (occurrence: US)
  Receive Date: 20120611
  Receipt Date: 20130131
  Transmission Date: 20140127
  Serious: Yes (Other)
  Sender: FDA-Public Use
  Company Number: US-ASTRAZENECA-2007UW11315

PATIENT
  Age: 82 Year
  Sex: Female

DRUGS (3)
  1. ARIMIDEX [Suspect]
     Route: 048
  2. NEXIUM [Suspect]
     Indication: GASTROOESOPHAGEAL REFLUX DISEASE
     Route: 048
  3. TAMOXIFEN [Suspect]
     Route: 048

REACTIONS (3)
  - Breast cancer female [Unknown]
  - Malaise [Unknown]
  - Drug hypersensitivity [Unknown]
